FAERS Safety Report 5789378-4 (Version None)
Quarter: 2008Q2

REPORT INFORMATION
  Report Type: 
  Country: None (occurrence: None)
  Receive Date: 20080626
  Receipt Date: 20080211
  Transmission Date: 20081010
  Serious: No
  Sender: FDA-Public Use
  Company Number: US-ASTRAZENECA-2008UW02874

PATIENT
  Age: 13 Year
  Sex: Male
  Weight: 99.8 kg

DRUGS (3)
  1. PULMICORT RESPULES [Suspect]
     Indication: ASTHMA
     Route: 055
     Dates: start: 20031201, end: 20041101
  2. ALBUTEROL [Concomitant]
  3. FLOVENT [Concomitant]

REACTIONS (2)
  - FRACTURE [None]
  - WEIGHT INCREASED [None]
